FAERS Safety Report 18669270 (Version 1)
Quarter: 2020Q4

REPORT INFORMATION
  Report Type: Spontaneous
  Country: DK (occurrence: DK)
  Receive Date: 20201228
  Receipt Date: 20201228
  Transmission Date: 20210114
  Serious: Yes (Hospitalization)
  Sender: FDA-Public Use
  Company Number: NVSC2020DK339073

PATIENT
  Age: 58 Year
  Sex: Male

DRUGS (3)
  1. DICLOCIL [Suspect]
     Active Substance: DICLOXACILLIN SODIUM
     Indication: STAPHYLOCOCCAL INFECTION
     Dosage: 4 G,QD (STRENGTH: 1G)
     Route: 042
     Dates: start: 20170417, end: 20170509
  2. DICILLIN [Suspect]
     Active Substance: DICLOXACILLIN SODIUM
     Indication: STAPHYLOCOCCAL INFECTION
     Dosage: UNK (STRENGTH: UNKNOWN DOSAGE: UNKNOWN)
     Route: 048
     Dates: start: 20170509, end: 2017
  3. AMOXICILLIN. [Suspect]
     Active Substance: AMOXICILLIN
     Indication: STAPHYLOCOCCAL INFECTION
     Dosage: UNK (STRENGTH: UNKNOWN DOSAGE: UNKNOWN)
     Route: 065

REACTIONS (4)
  - Volvulus [Recovered/Resolved]
  - Clostridium colitis [Recovered/Resolved]
  - Abdominal pain [Recovered/Resolved]
  - Intestinal dilatation [Recovered/Resolved]

NARRATIVE: CASE EVENT DATE: 2017
